FAERS Safety Report 17970924 (Version 2)
Quarter: 2020Q3

REPORT INFORMATION
  Report Type: Report from Study
  Country: None (occurrence: US)
  Receive Date: 20200702
  Receipt Date: 20200831
  Transmission Date: 20201103
  Serious: Yes (Other)
  Sender: FDA-Public Use
  Company Number: US-ABBVIE-20K-163-3325751-00

PATIENT
  Age: 62 Year
  Sex: Female

DRUGS (2)
  1. HUMIRA [Suspect]
     Active Substance: ADALIMUMAB
     Route: 058
     Dates: start: 20200619
  2. HUMIRA [Suspect]
     Active Substance: ADALIMUMAB
     Indication: PSORIASIS
     Route: 058
     Dates: start: 20190613, end: 20200203

REACTIONS (9)
  - Glaucoma [Recovered/Resolved]
  - Self-consciousness [Not Recovered/Not Resolved]
  - Psoriasis [Recovered/Resolved]
  - Emotional distress [Recovered/Resolved]
  - Skin irritation [Recovered/Resolved]
  - General physical condition abnormal [Recovered/Resolved]
  - Emotional disorder [Recovered/Resolved]
  - Frustration tolerance decreased [Not Recovered/Not Resolved]
  - Injection site bruising [Recovering/Resolving]

NARRATIVE: CASE EVENT DATE: 2020
